FAERS Safety Report 5818112-4 (Version None)
Quarter: 2008Q3

REPORT INFORMATION
  Report Type: 
  Country: None (occurrence: None)
  Receive Date: 20080722
  Receipt Date: 20071012
  Transmission Date: 20090109
  Serious: No
  Sender: FDA-Public Use
  Company Number: US-BAYER-US-2007-038845

PATIENT
  Age: 76 Year
  Sex: Female
  Weight: 117 kg

DRUGS (13)
  1. MAGNEVIST [Suspect]
     Indication: NUCLEAR MAGNETIC RESONANCE IMAGING BRAIN
     Dosage: UNIT DOSE: 23 ML
     Route: 042
     Dates: start: 20071011, end: 20071011
  2. BENICAR [Concomitant]
  3. GLYBURIDE [Concomitant]
  4. ASPIRIN [Concomitant]
  5. LOVASTATIN [Concomitant]
  6. PLAVIX [Concomitant]
  7. DILTIAZEM HCL [Concomitant]
  8. ARICEPT [Concomitant]
  9. VITAMIN B COMPLEX CAP [Concomitant]
  10. CENTRUM [Concomitant]
  11. LASIX [Concomitant]
  12. NIACIN [Concomitant]
  13. KLOR-CON [Concomitant]

REACTIONS (3)
  - PRURITUS [None]
  - RASH PAPULAR [None]
  - URTICARIA [None]
